FAERS Safety Report 8134291-0 (Version None)
Quarter: 2012Q1

REPORT INFORMATION
  Report Type: 
  Country: None (occurrence: None)
  Receive Date: 20120208
  Receipt Date: 20120104
  Transmission Date: 20120608
  Serious: Yes (Other)
  Sender: FDA-Public Use
  Company Number: AUR-APL-2012-00778

PATIENT
  Age: 67 Year
  Sex: Female

DRUGS (1)
  1. METFORMIN HCL [Suspect]
     Indication: PRODUCT USED FOR UNKNOWN INDICATION

REACTIONS (11)
  - CARDIAC ARREST [None]
  - LEG AMPUTATION [None]
  - CAROTID ARTERY STENOSIS [None]
  - ARTERIOSCLEROSIS CORONARY ARTERY [None]
  - LACTIC ACIDOSIS [None]
  - DEHYDRATION [None]
  - AGRANULOCYTOSIS [None]
  - NECROSIS [None]
  - PERIPHERAL VASCULAR DISORDER [None]
  - VOMITING [None]
  - TOE AMPUTATION [None]
